FAERS Safety Report 8510305 (Version 2)
Quarter: 2013Q2

REPORT INFORMATION
  Report Type: Spontaneous
  Country: US (occurrence: None)
  Receive Date: 20120322
  Receipt Date: 20120621
  Transmission Date: 20140414
  Serious: Yes (Hospitalization)
  Sender: FDA-Public Use
  Company Number: UTC-013987

PATIENT
  Age: 75 Year
  Sex: Male
  Weight: 55.45 kg

DRUGS (4)
  1. TYVASO [Suspect]
     Indication: PULMONARY ARTERIAL HYPERTENSION
     Dosage: 96 MCG (24 MCG, 4 IN 1 D),INHALATION
     Route: 055
     Dates: start: 20100702
  2. OXYGEN [Concomitant]
  3. COUMADIN (WARFARIN) [Concomitant]
  4. LISINOPRIL [Concomitant]

REACTIONS (1)
  - CEREBROVASCULAR ACCIDENT [None]
